FAERS Safety Report 24166967 (Version 1)
Quarter: 2024Q3

REPORT INFORMATION
  Report Type: Spontaneous
  Country: US (occurrence: US)
  Receive Date: 20240802
  Receipt Date: 20240802
  Transmission Date: 20241017
  Serious: No
  Sender: ENDO
  Company Number: US-ENDO PHARMACEUTICALS INC-2024-001245

PATIENT
  Age: 83 Year
  Sex: Male

DRUGS (5)
  1. EDEX [Suspect]
     Active Substance: ALPROSTADIL
     Indication: Erectile dysfunction
     Dosage: 40 MICROGRAM, PRN (ONCE AS NEEDED)
     Route: 051
     Dates: start: 20231114
  2. EDEX [Suspect]
     Active Substance: ALPROSTADIL
     Indication: Erectile dysfunction
     Dosage: 40 MICROGRAM, PRN (ONCE AS NEEDED)
     Route: 051
     Dates: start: 20231114
  3. EDEX [Suspect]
     Active Substance: ALPROSTADIL
     Indication: Erectile dysfunction
     Dosage: 40 MICROGRAM, PRN (ONCE AS NEEDED)
     Route: 051
     Dates: start: 20231114
  4. EDEX [Suspect]
     Active Substance: ALPROSTADIL
     Indication: Erectile dysfunction
     Dosage: 40 MICROGRAM, PRN (ONCE AS NEEDED)
     Route: 051
     Dates: start: 20231114
  5. EDEX [Suspect]
     Active Substance: ALPROSTADIL
     Indication: Erectile dysfunction
     Dosage: 40 MICROGRAM, PRN (ONCE AS NEEDED)
     Route: 051
     Dates: start: 20231114

REACTIONS (1)
  - Drug ineffective [Unknown]

NARRATIVE: CASE EVENT DATE: 20231114
